FAERS Safety Report 7920211-8 (Version None)
Quarter: 2011Q4

REPORT INFORMATION
  Report Type: 
  Country: None (occurrence: None)
  Receive Date: 20111117
  Receipt Date: 20111116
  Transmission Date: 20120403
  Serious: Yes (Death, Other)
  Sender: FDA-Public Use
  Company Number: US-PFIZER INC-2010060616

PATIENT
  Age: 70 Year
  Sex: Female

DRUGS (2)
  1. LEXAPRO [Concomitant]
     Dosage: UNK
  2. ZYVOX [Suspect]
     Indication: ENTEROCOCCAL INFECTION
     Dosage: UNK
     Dates: start: 20100501

REACTIONS (2)
  - SEROTONIN SYNDROME [None]
  - PYREXIA [None]
